FAERS Safety Report 15492584 (Version 2)
Quarter: 2018Q4

REPORT INFORMATION
  Report Type: Report from Study
  Country: JP (occurrence: JP)
  Receive Date: 20181012
  Receipt Date: 20181018
  Transmission Date: 20190205
  Serious: Yes (Hospitalization)
  Sender: FDA-Public Use
  Company Number: JP-ASTRAZENECA-2018SF30106

PATIENT
  Age: 27905 Day
  Sex: Female
  Weight: 40.9 kg

DRUGS (19)
  1. VESICARE [Concomitant]
     Active Substance: SOLIFENACIN SUCCINATE
     Indication: POLLAKIURIA
  2. EVISTA [Concomitant]
     Active Substance: RALOXIFENE HYDROCHLORIDE
     Indication: OSTEOPOROSIS
  3. REBAMIPIDE [Concomitant]
     Active Substance: REBAMIPIDE
     Indication: DYSPEPSIA
     Dates: start: 20180301
  4. NORVASC [Concomitant]
     Active Substance: AMLODIPINE BESYLATE
     Indication: HYPERTENSION
     Route: 048
  5. DEXALTIN [Concomitant]
     Active Substance: DEXAMETHASONE
     Indication: STOMATITIS
     Dates: start: 20180225
  6. TAGRISSO [Suspect]
     Active Substance: OSIMERTINIB
     Indication: NON-SMALL CELL LUNG CANCER
     Route: 048
     Dates: start: 20180227, end: 20180926
  7. CRESTOR [Concomitant]
     Active Substance: ROSUVASTATIN CALCIUM
     Indication: HYPERLIPIDAEMIA
  8. CRESTOR [Concomitant]
     Active Substance: ROSUVASTATIN CALCIUM
     Indication: HYPERLIPIDAEMIA
     Dates: start: 20180704
  9. HACHIAZULE [Concomitant]
     Indication: STOMATITIS
     Dates: start: 20180301
  10. PALDES [Concomitant]
     Indication: DERMATITIS
     Dates: start: 20180426
  11. TRYPTANOL [Concomitant]
     Active Substance: AMITRIPTYLINE
     Indication: POLLAKIURIA
  12. DIQUAS [Concomitant]
     Active Substance: DIQUAFOSOL TETRASODIUM
     Indication: DRY EYE
     Route: 047
  13. BEVACIZUMAB. [Suspect]
     Active Substance: BEVACIZUMAB
     Indication: NON-SMALL CELL LUNG CANCER
     Route: 065
  14. TEARBALANCE [Concomitant]
     Active Substance: HYALURONATE SODIUM
     Indication: DRY EYE
     Route: 047
  15. HIRUDOID [Concomitant]
     Active Substance: GLYCOSAMINOGLYCANS
     Indication: DRY SKIN
     Dates: start: 20180226
  16. DERTOPICA [Concomitant]
     Indication: DERMATITIS
     Dates: start: 20180823
  17. EDIROL [Concomitant]
     Active Substance: ELDECALCITOL
     Indication: OSTEOPOROSIS
  18. IDOMETHINE [Concomitant]
     Active Substance: INDOMETHACIN
     Indication: BACK PAIN
  19. DEXAN-VG [Concomitant]
     Indication: PARONYCHIA
     Dates: start: 20180823

REACTIONS (1)
  - Lung infection [Recovering/Resolving]

NARRATIVE: CASE EVENT DATE: 20180929
